FAERS Safety Report 10205243 (Version 1)
Quarter: 2014Q2

REPORT INFORMATION
  Report Type: Spontaneous
  Country: US (occurrence: None)
  Receive Date: 20140527
  Receipt Date: 20140527
  Transmission Date: 20141212
  Serious: Yes (Hospitalization)
  Sender: FDA-Public Use
  Company Number: None

PATIENT
  Age: 32 Year
  Sex: Female

DRUGS (1)
  1. ETONOGESTREL [Suspect]
     Indication: CONTRACEPTION
     Dosage: ONCE
     Dates: start: 20120125, end: 20120125

REACTIONS (4)
  - Chills [None]
  - Body temperature increased [None]
  - Tachycardia [None]
  - Anaesthetic complication [None]
